FAERS Safety Report 13938045 (Version 1)
Quarter: 2017Q3

REPORT INFORMATION
  Report Type: Spontaneous
  Country: US (occurrence: US)
  Receive Date: 20170905
  Receipt Date: 20170905
  Transmission Date: 20171127
  Serious: Yes (Hospitalization)
  Sender: FDA-Public Use
  Company Number: US-SA-2017SA159521

PATIENT
  Age: 68 Year
  Sex: Female
  Weight: 54.8 kg

DRUGS (35)
  1. COUMADIN [Suspect]
     Active Substance: WARFARIN SODIUM
     Indication: DISEASE RISK FACTOR
     Route: 048
     Dates: start: 2006, end: 20160623
  2. COUMADIN [Suspect]
     Active Substance: WARFARIN SODIUM
     Indication: DISEASE RISK FACTOR
     Route: 048
     Dates: start: 20160627, end: 20170125
  3. PERCOCET [Concomitant]
     Active Substance: ACETAMINOPHEN\OXYCODONE HYDROCHLORIDE
     Route: 048
     Dates: start: 20151230
  4. CARAFATE [Concomitant]
     Active Substance: SUCRALFATE
     Route: 048
     Dates: start: 201405
  5. LASIX [Concomitant]
     Active Substance: FUROSEMIDE
     Route: 048
     Dates: start: 2006
  6. EFUDEX [Concomitant]
     Active Substance: FLUOROURACIL
  7. LORCASERIN HYDROCHLORIDE [Suspect]
     Active Substance: LORCASERIN HYDROCHLORIDE
     Indication: WEIGHT CONTROL
     Route: 048
     Dates: start: 20141217, end: 20160602
  8. ASPIRIN. [Concomitant]
     Active Substance: ASPIRIN
     Route: 048
     Dates: start: 2006
  9. PROTONIX [Concomitant]
     Active Substance: PANTOPRAZOLE SODIUM
  10. PLAVIX [Suspect]
     Active Substance: CLOPIDOGREL BISULFATE
     Indication: ARTERIAL OCCLUSIVE DISEASE
     Route: 048
     Dates: start: 20170207, end: 20170405
  11. COUMADIN [Suspect]
     Active Substance: WARFARIN SODIUM
     Indication: DISEASE RISK FACTOR
     Route: 048
     Dates: start: 20170131, end: 20170224
  12. TYLOX [Concomitant]
     Active Substance: ACETAMINOPHEN\OXYCODONE HYDROCHLORIDE
     Route: 048
     Dates: start: 20151230
  13. PRILOSEC [Concomitant]
     Active Substance: OMEPRAZOLE MAGNESIUM
     Route: 048
     Dates: start: 20160107
  14. ISOSORBIDE MONONITRATE. [Concomitant]
     Active Substance: ISOSORBIDE MONONITRATE
     Route: 048
     Dates: start: 2006
  15. WELLBUTRIN [Concomitant]
     Active Substance: BUPROPION HYDROCHLORIDE
  16. METOPROLOL. [Concomitant]
     Active Substance: METOPROLOL
     Route: 048
     Dates: start: 2006
  17. RANEXA [Concomitant]
     Active Substance: RANOLAZINE
     Route: 048
     Dates: start: 2006
  18. ZOLOFT [Concomitant]
     Active Substance: SERTRALINE HYDROCHLORIDE
     Route: 048
     Dates: start: 2006
  19. CALCIUM [Concomitant]
     Active Substance: CALCIUM
     Route: 048
     Dates: start: 2009
  20. ADVAIR HFA [Concomitant]
     Active Substance: FLUTICASONE PROPIONATE\SALMETEROL XINAFOATE
     Route: 050
     Dates: start: 2006
  21. FEMARA [Concomitant]
     Active Substance: LETROZOLE
     Route: 048
     Dates: start: 2013
  22. CERAVE [Concomitant]
  23. PROLIA [Concomitant]
     Active Substance: DENOSUMAB
  24. LEVSIN [Concomitant]
     Active Substance: HYOSCYAMINE SULFATE
  25. VITAMIN D3 [Concomitant]
     Active Substance: CHOLECALCIFEROL
     Route: 048
     Dates: start: 2009
  26. COUMADIN [Suspect]
     Active Substance: WARFARIN SODIUM
     Indication: DISEASE RISK FACTOR
     Route: 048
     Dates: start: 20170227
  27. SIMVASTATIN. [Concomitant]
     Active Substance: SIMVASTATIN
     Route: 048
     Dates: start: 2006
  28. PRILOSEC [Concomitant]
     Active Substance: OMEPRAZOLE MAGNESIUM
     Route: 048
     Dates: start: 20160125
  29. KLOR-CON [Concomitant]
     Active Substance: POTASSIUM CHLORIDE
     Route: 048
     Dates: start: 2006
  30. WARFARIN [Concomitant]
     Active Substance: WARFARIN
  31. PLAVIX [Suspect]
     Active Substance: CLOPIDOGREL BISULFATE
     Indication: ARTERIAL OCCLUSIVE DISEASE
     Route: 048
     Dates: start: 20170116, end: 20170116
  32. COUMADIN [Suspect]
     Active Substance: WARFARIN SODIUM
     Indication: DISEASE RISK FACTOR
     Route: 048
     Dates: start: 20160624, end: 20160626
  33. ZYRTEC [Concomitant]
     Active Substance: CETIRIZINE HYDROCHLORIDE
     Route: 048
     Dates: start: 2010
  34. NITROGLYCERIN. [Concomitant]
     Active Substance: NITROGLYCERIN
  35. NORVASC [Concomitant]
     Active Substance: AMLODIPINE BESYLATE

REACTIONS (3)
  - Cholecystitis chronic [Recovered/Resolved]
  - Haemorrhagic anaemia [Recovered/Resolved]
  - Peripheral arterial occlusive disease [Recovered/Resolved]

NARRATIVE: CASE EVENT DATE: 20160118
